FAERS Safety Report 5531660-X (Version None)
Quarter: 2007Q4

REPORT INFORMATION
  Report Type: 
  Country: None (occurrence: None)
  Receive Date: 20071128
  Receipt Date: 20071128
  Transmission Date: 20080405
  Serious: No
  Sender: FDA-Public Use
  Company Number: None

PATIENT
  Age: 48 Year
  Sex: Male

DRUGS (1)
  1. CAPSAICIN [Suspect]
     Indication: PAIN
     Dosage: 0.25% TID TOP
     Route: 061
     Dates: start: 20070905, end: 20071012

REACTIONS (4)
  - BLISTER [None]
  - ERYTHEMA [None]
  - IRRITABILITY [None]
  - RASH [None]
